FAERS Safety Report 24390646 (Version 2)
Quarter: 2025Q1

REPORT INFORMATION
  Report Type: Spontaneous
  Country: BG (occurrence: BG)
  Receive Date: 20241003
  Receipt Date: 20250112
  Transmission Date: 20250408
  Serious: Yes (Other)
  Sender: SANDOZ
  Company Number: None

PATIENT
  Age: 62 Year
  Sex: Male

DRUGS (6)
  1. BORTEZOMIB [Suspect]
     Active Substance: BORTEZOMIB
     Indication: Plasma cell leukaemia
     Route: 065
     Dates: start: 202402
  2. DECADRON (DEXAMETHASONE SODIUM PHOSPHATE) [Suspect]
     Active Substance: DEXAMETHASONE SODIUM PHOSPHATE
     Indication: Plasma cell leukaemia
     Route: 042
  3. LENALIDOMIDE [Suspect]
     Active Substance: LENALIDOMIDE
     Indication: Plasma cell leukaemia
     Route: 065
  4. CARFILZOMIB [Concomitant]
     Active Substance: CARFILZOMIB
     Indication: Product used for unknown indication
     Route: 042
  5. CARFILZOMIB [Concomitant]
     Active Substance: CARFILZOMIB
     Route: 042
  6. ISATUXIMAB [Concomitant]
     Active Substance: ISATUXIMAB
     Indication: Product used for unknown indication
     Route: 042

REACTIONS (3)
  - Haematotoxicity [Unknown]
  - Drug resistance [Unknown]
  - Thrombocytopenia [Unknown]
